FAERS Safety Report 10405696 (Version 1)
Quarter: 2014Q3

REPORT INFORMATION
  Report Type: Spontaneous
  Country: US (occurrence: None)
  Receive Date: 20140822
  Receipt Date: 20140822
  Transmission Date: 20150326
  Serious: Yes (Hospitalization)
  Sender: FDA-Public Use
  Company Number: None

PATIENT
  Age: 75 Year
  Sex: Female
  Weight: 55.3 kg

DRUGS (1)
  1. CAPECITABINE [Suspect]
     Active Substance: CAPECITABINE
     Dates: end: 20140530

REACTIONS (4)
  - Blood potassium decreased [None]
  - Wound secretion [None]
  - Pelvic abscess [None]
  - Rectal discharge [None]

NARRATIVE: CASE EVENT DATE: 20140815
